FAERS Safety Report 8907473 (Version 3)
Quarter: 2014Q1

REPORT INFORMATION
  Report Type: Report from Study
  Country: HU (occurrence: HU)
  Receive Date: 20121114
  Receipt Date: 20140102
  Transmission Date: 20141002
  Serious: Yes (Hospitalization)
  Sender: FDA-Public Use
  Company Number: HU-UCBSA-070724

PATIENT
  Age: 51 Year
  Sex: Female
  Weight: 51 kg

DRUGS (6)
  1. CIMZIA [Suspect]
     Indication: RHEUMATOID ARTHRITIS
     Route: 058
     Dates: start: 20120126, end: 20120817
  2. METHOTREXATE [Concomitant]
     Indication: RHEUMATOID ARTHRITIS
     Route: 048
     Dates: start: 201210
  3. METOPROLOL [Concomitant]
     Indication: HYPERTENSION
     Route: 048
  4. LOSARTAN+ HYDROCHLOROTHIAZIDE [Concomitant]
     Indication: HYPERTENSION
     Route: 048
  5. PANTOPRAZOLE [Concomitant]
     Indication: GASTROOESOPHAGEAL REFLUX DISEASE
     Route: 048
  6. SOTALOL [Concomitant]
     Indication: TACHYCARDIA
     Route: 048

REACTIONS (1)
  - Lymphoproliferative disorder [Recovering/Resolving]
